FAERS Safety Report 19147686 (Version 2)
Quarter: 2021Q2

REPORT INFORMATION
  Report Type: Spontaneous
  Country: MY (occurrence: MY)
  Receive Date: 20210416
  Receipt Date: 20210422
  Transmission Date: 20210717
  Serious: Yes (Other)
  Sender: FDA-Public Use
  Company Number: MY-INCYTE CORPORATION-2021IN003283

PATIENT

DRUGS (10)
  1. JAKAVI [Suspect]
     Active Substance: RUXOLITINIB
     Indication: GRAFT VERSUS HOST DISEASE
     Dosage: 10 MG, BID
     Route: 065
  2. GRANULOCYTE COLONY STIMULATING FACTOR [Concomitant]
     Active Substance: GRANULOCYTE COLONY-STIMULATING FACTOR NOS
     Indication: PRODUCT USED FOR UNKNOWN INDICATION
     Dosage: UNK
     Route: 065
  3. PENICILLIN V [PHENOXYMETHYLPENICILLIN] [Concomitant]
     Active Substance: PENICILLIN V
     Indication: PRODUCT USED FOR UNKNOWN INDICATION
     Dosage: 250 MG, BID
     Route: 065
  4. PREDNISOLONE. [Concomitant]
     Active Substance: PREDNISOLONE
     Indication: PRODUCT USED FOR UNKNOWN INDICATION
     Dosage: 10 MG, BID
     Route: 065
  5. VALGANCICLOVIR. [Concomitant]
     Active Substance: VALGANCICLOVIR
     Indication: PRODUCT USED FOR UNKNOWN INDICATION
     Dosage: 900 MG, QD
     Route: 065
  6. POSACONAZOLE [Concomitant]
     Active Substance: POSACONAZOLE
     Indication: PRODUCT USED FOR UNKNOWN INDICATION
     Dosage: 200 MG, TID
     Route: 065
  7. RITUXIMAB. [Concomitant]
     Active Substance: RITUXIMAB
     Indication: PRODUCT USED FOR UNKNOWN INDICATION
     Dosage: 10 MG, BID
     Route: 065
     Dates: start: 20191204
  8. EPREX [Concomitant]
     Active Substance: ERYTHROPOIETIN
     Indication: PRODUCT USED FOR UNKNOWN INDICATION
     Dosage: UNK
     Route: 058
  9. MYCOPHENOLATE MOFETIL. [Concomitant]
     Active Substance: MYCOPHENOLATE MOFETIL
     Indication: PRODUCT USED FOR UNKNOWN INDICATION
     Dosage: 1 G, BID
     Route: 065
  10. IBRUTINIB [Concomitant]
     Active Substance: IBRUTINIB
     Indication: PRODUCT USED FOR UNKNOWN INDICATION
     Dosage: UNK
     Route: 065
     Dates: start: 20201123

REACTIONS (34)
  - Cytomegalovirus infection [Unknown]
  - Bronchiectasis [Unknown]
  - Oral disorder [Unknown]
  - Cystitis haemorrhagic [Unknown]
  - BK virus infection [Not Recovered/Not Resolved]
  - Blood alkaline phosphatase increased [Unknown]
  - Chronic graft versus host disease in liver [Unknown]
  - Dry eye [Unknown]
  - Ocular hyperaemia [Unknown]
  - Blood bilirubin increased [Unknown]
  - Weight decreased [Unknown]
  - Chronic graft versus host disease in skin [Unknown]
  - Skin lesion [Unknown]
  - Chronic graft versus host disease in eye [Unknown]
  - Blood lactate dehydrogenase increased [Unknown]
  - Graft versus host disease in skin [Recovered/Resolved]
  - Thrombocytopenia [Unknown]
  - Upper gastrointestinal haemorrhage [Unknown]
  - Alanine aminotransferase decreased [Unknown]
  - Obliterative bronchiolitis [Unknown]
  - Chronic graft versus host disease oral [Unknown]
  - Respiratory disorder [Unknown]
  - Dyspnoea exertional [Recovered/Resolved]
  - Rhinoscleroma [Unknown]
  - Product use in unapproved indication [Unknown]
  - Device related sepsis [Unknown]
  - Alanine aminotransferase increased [Unknown]
  - Haematuria [Recovered/Resolved]
  - Anaemia [Unknown]
  - Colitis [Unknown]
  - Graft versus host disease in gastrointestinal tract [Recovered/Resolved]
  - Oral pain [Unknown]
  - Rash macular [Unknown]
  - Thrombotic microangiopathy [Recovered/Resolved]

NARRATIVE: CASE EVENT DATE: 20190814
